FAERS Safety Report 9145707 (Version 1)
Quarter: 2013Q1

REPORT INFORMATION
  Report Type: Spontaneous
  Country: US (occurrence: US)
  Receive Date: 20130307
  Receipt Date: 20130307
  Transmission Date: 20140127
  Serious: Yes (Hospitalization)
  Sender: FDA-Public Use
  Company Number: US-BAYER-2013-027639

PATIENT
  Age: 25 Year
  Sex: Female
  Weight: 57 kg

DRUGS (4)
  1. OCELLA [Suspect]
     Indication: ACNE
  2. OCELLA [Suspect]
     Indication: METRORRHAGIA
  3. OCELLA [Suspect]
     Indication: HOT FLUSH
  4. MICROGESTIN FE [Concomitant]

REACTIONS (1)
  - Pulmonary embolism [None]
